FAERS Safety Report 13663376 (Version 1)
Quarter: 2017Q2

REPORT INFORMATION
  Report Type: Spontaneous
  Country: JP (occurrence: JP)
  Receive Date: 20170619
  Receipt Date: 20170619
  Transmission Date: 20170830
  Serious: Yes (Hospitalization, Other)
  Sender: FDA-Public Use
  Company Number: JP-SUN PHARMACEUTICAL INDUSTRIES LTD-2017R1-136152

PATIENT
  Age: 31 Year
  Sex: Female

DRUGS (1)
  1. FUROSEMIDE. [Suspect]
     Active Substance: FUROSEMIDE
     Indication: WEIGHT DECREASED
     Dosage: } MORE THAN 200 MG PER DAY
     Route: 065

REACTIONS (4)
  - Nephrocalcinosis [Unknown]
  - Hypokalaemia [Unknown]
  - Ileus paralytic [Unknown]
  - Drug use disorder [Unknown]
